FAERS Safety Report 17213728 (Version 1)
Quarter: 2019Q4

REPORT INFORMATION
  Report Type: Spontaneous
  Country: FR (occurrence: FR)
  Receive Date: 20191230
  Receipt Date: 20191230
  Transmission Date: 20200122
  Serious: Yes (Other)
  Sender: FDA-Public Use
  Company Number: FR-US-PROVELL PHARMACEUTICALS LLC-9017117

PATIENT
  Sex: Female

DRUGS (1)
  1. LEVOTHYROX NF [Suspect]
     Active Substance: LEVOTHYROXINE SODIUM
     Indication: POST PROCEDURAL HYPOTHYROIDISM

REACTIONS (18)
  - Negative thoughts [Unknown]
  - Stress [Unknown]
  - Social avoidant behaviour [Unknown]
  - Migraine [Unknown]
  - Depression [Unknown]
  - Muscle spasms [Unknown]
  - Fatigue [Unknown]
  - Anger [Unknown]
  - Mood altered [Unknown]
  - Suicidal ideation [Unknown]
  - Obesity [Unknown]
  - Depressed mood [Unknown]
  - Pain [Unknown]
  - Sleep apnoea syndrome [Unknown]
  - Bipolar disorder [Unknown]
  - Myalgia [Unknown]
  - Gait disturbance [Unknown]
  - Loss of personal independence in daily activities [Unknown]
